FAERS Safety Report 20532537 (Version 1)
Quarter: 2022Q1

REPORT INFORMATION
  Report Type: Spontaneous
  Country: US (occurrence: None)
  Receive Date: 20220228
  Receipt Date: 20220228
  Transmission Date: 20220423
  Serious: No
  Sender: FDA-Public Use
  Company Number: None

PATIENT
  Age: 53 Year
  Sex: Female
  Weight: 74.25 kg

DRUGS (7)
  1. REXULTI [Suspect]
     Active Substance: BREXPIPRAZOLE
     Indication: Bipolar I disorder
     Dosage: OTHER QUANTITY : 1 TABLET(S);?
     Route: 048
     Dates: start: 20220202, end: 20220228
  2. ADDERALL [Concomitant]
     Active Substance: AMPHETAMINE ASPARTATE\AMPHETAMINE SULFATE\DEXTROAMPHETAMINE SACCHARATE\DEXTROAMPHETAMINE SULFATE
  3. TOPIRAMATE [Concomitant]
     Active Substance: TOPIRAMATE
  4. ABILIFY [Concomitant]
     Active Substance: ARIPIPRAZOLE
  5. TRINTELLIX [Concomitant]
     Active Substance: VORTIOXETINE HYDROBROMIDE
  6. XANAX [Concomitant]
     Active Substance: ALPRAZOLAM
  7. MELATONIN [Concomitant]
     Active Substance: MELATONIN

REACTIONS (1)
  - Menstruation irregular [None]

NARRATIVE: CASE EVENT DATE: 20220209
